FAERS Safety Report 13364554 (Version 8)
Quarter: 2019Q2

REPORT INFORMATION
  Report Type: Spontaneous
  Country: FR (occurrence: FR)
  Receive Date: 20170323
  Receipt Date: 20190604
  Transmission Date: 20190711
  Serious: Yes (Hospitalization, Other)
  Sender: FDA-Public Use
  Company Number: PHHY2017FR041418

PATIENT
  Age: 69 Year
  Sex: Male

DRUGS (15)
  1. NEORAL [Suspect]
     Active Substance: CYCLOSPORINE
     Indication: RENAL TRANSPLANT
     Dosage: 50 MG, BID
     Route: 065
  2. MYCOPHENOLATE MOFETIL. [Suspect]
     Active Substance: MYCOPHENOLATE MOFETIL
     Indication: IMMUNOSUPPRESSANT DRUG THERAPY
     Dosage: 750 MG, BID
     Route: 065
  3. PREDNISONE. [Suspect]
     Active Substance: PREDNISONE
     Indication: IMMUNOSUPPRESSANT DRUG THERAPY
     Dosage: 1 MG/KG, QD
     Route: 065
  4. METHYLPREDNISOLON [Suspect]
     Active Substance: METHYLPREDNISOLONE
     Indication: RENAL IMPAIRMENT
     Dosage: 500 MG, QD
     Route: 065
  5. METHYLPREDNISOLON [Suspect]
     Active Substance: METHYLPREDNISOLONE
     Indication: IMMUNOSUPPRESSANT DRUG THERAPY
     Dosage: 2 MG/KG, UNK
     Route: 065
  6. PARACETAMOL [Suspect]
     Active Substance: ACETAMINOPHEN
     Indication: PYREXIA
     Route: 065
  7. SIROLIMUS. [Suspect]
     Active Substance: SIROLIMUS
     Indication: IMMUNOSUPPRESSANT DRUG THERAPY
  8. MYCOPHENOLATE MOFETIL. [Suspect]
     Active Substance: MYCOPHENOLATE MOFETIL
     Indication: RENAL TRANSPLANT
     Dosage: 500 MG, BID
     Route: 065
  9. RITUXIMAB. [Suspect]
     Active Substance: RITUXIMAB
     Indication: IMMUNOSUPPRESSANT DRUG THERAPY
  10. TACROLIMUS. [Suspect]
     Active Substance: TACROLIMUS
     Indication: RENAL IMPAIRMENT
     Route: 065
  11. PREDNISONE. [Suspect]
     Active Substance: PREDNISONE
     Indication: RENAL TRANSPLANT
     Dosage: 7.5 MG, QD
     Route: 065
  12. SIROLIMUS. [Suspect]
     Active Substance: SIROLIMUS
     Indication: RENAL IMPAIRMENT
     Route: 065
  13. NEORAL [Suspect]
     Active Substance: CYCLOSPORINE
     Indication: IMMUNOSUPPRESSANT DRUG THERAPY
     Dosage: 60 MG/KG, BID
     Route: 065
  14. RITUXIMAB. [Suspect]
     Active Substance: RITUXIMAB
     Indication: RENAL IMPAIRMENT
     Route: 065
  15. TACROLIMUS. [Suspect]
     Active Substance: TACROLIMUS
     Indication: IMMUNOSUPPRESSANT DRUG THERAPY

REACTIONS (18)
  - Duodenal ulcer [Unknown]
  - Cytomegalovirus infection [Unknown]
  - Kidney fibrosis [Unknown]
  - Sputum purulent [Recovering/Resolving]
  - Ulcer [Unknown]
  - Drug ineffective [Unknown]
  - Pneumocystis jirovecii pneumonia [Unknown]
  - Pyrexia [Recovering/Resolving]
  - Chills [Recovering/Resolving]
  - Tularaemia [Recovered/Resolved]
  - Haemoptysis [Recovering/Resolving]
  - Renal tubular atrophy [Not Recovered/Not Resolved]
  - Cytomegalovirus gastrointestinal ulcer [Unknown]
  - Pneumonia pneumococcal [Recovering/Resolving]
  - Hepatitis B [Unknown]
  - Kidney transplant rejection [Unknown]
  - Glomerulonephritis [Unknown]
  - Renal impairment [Not Recovered/Not Resolved]

NARRATIVE: CASE EVENT DATE: 200809
